FAERS Safety Report 9216617 (Version 2)
Quarter: 2014Q2

REPORT INFORMATION
  Report Type: Spontaneous
  Country: JP (occurrence: JP)
  Receive Date: 20130408
  Receipt Date: 20140403
  Transmission Date: 20141212
  Serious: Yes (Life-Threatening, Hospitalization)
  Sender: FDA-Public Use
  Company Number: JP-SANOFI-AVENTIS-2013SA035722

PATIENT
  Age: 67 Year
  Sex: Male
  Weight: 56 kg

DRUGS (10)
  1. LANTUS [Suspect]
     Indication: TYPE 1 DIABETES MELLITUS
     Dosage: 4 UNITS BEFORE BREAKFAST AND 3 UNITS JUST BEFORE GOING TO BED
     Route: 058
     Dates: start: 201203
  2. NOVORAPID [Suspect]
     Indication: TYPE 1 DIABETES MELLITUS
     Dosage: MORNING 4 UNITS, LUNCH 6 UNITS, EVENING 5 UNITS
     Route: 058
     Dates: start: 201203
  3. NOVOLIN R [Concomitant]
     Indication: TYPE 1 DIABETES MELLITUS
     Route: 058
     Dates: end: 20120217
  4. NOVOLIN N [Concomitant]
     Indication: TYPE 1 DIABETES MELLITUS
     Dosage: 12-130
     Route: 058
     Dates: end: 20120217
  5. UBRETID [Concomitant]
     Indication: NEUROGENIC BLADDER
     Route: 048
     Dates: start: 20080807
  6. BAYASPIRIN [Concomitant]
     Indication: CEREBELLAR INFARCTION
     Route: 048
     Dates: end: 20121023
  7. NORVASC [Concomitant]
     Indication: HYPERTENSION
     Route: 048
  8. MICARDIS [Concomitant]
     Indication: HYPERTENSION
     Route: 048
  9. LASIX [Concomitant]
     Indication: RENAL FAILURE
     Route: 048
     Dates: end: 20121023
  10. ZYLORIC [Concomitant]
     Indication: HYPERURICAEMIA
     Route: 048
     Dates: end: 20121023

REACTIONS (5)
  - Hypoglycaemia [Recovering/Resolving]
  - Hypothermia [Recovering/Resolving]
  - Altered state of consciousness [Recovering/Resolving]
  - Electrocardiogram QT prolonged [Recovered/Resolved]
  - Bradycardia [Recovering/Resolving]
